FAERS Safety Report 12617971 (Version 1)
Quarter: 2016Q3

REPORT INFORMATION
  Report Type: Spontaneous
  Country: US (occurrence: US)
  Receive Date: 20160803
  Receipt Date: 20160803
  Transmission Date: 20161109
  Serious: No
  Sender: FDA-Public Use
  Company Number: US-009507513-1608USA000039

PATIENT
  Sex: Female

DRUGS (3)
  1. GLYBURIDE. [Suspect]
     Active Substance: GLYBURIDE
     Dosage: UNK
  2. JANUMET [Suspect]
     Active Substance: METFORMIN HYDROCHLORIDE\SITAGLIPTIN PHOSPHATE
     Dosage: UNK
     Route: 048
  3. INVOKANA [Suspect]
     Active Substance: CANAGLIFLOZIN
     Dosage: UNK

REACTIONS (1)
  - Muscle spasms [Unknown]
